FAERS Safety Report 15458112 (Version 1)
Quarter: 2018Q4

REPORT INFORMATION
  Report Type: Report from Study
  Country: None (occurrence: DE)
  Receive Date: 20181003
  Receipt Date: 20181003
  Transmission Date: 20190204
  Serious: Yes (Hospitalization)
  Sender: FDA-Public Use
  Company Number: DE-ABBVIE-18S-062-2485884-00

PATIENT
  Sex: Female

DRUGS (1)
  1. DUODOPA [Suspect]
     Active Substance: CARBIDOPA\LEVODOPA
     Indication: PARKINSON^S DISEASE
     Dosage: MD 3 ML CRD 4 ML/H CRN 4 ML/H ED 1 ML
     Route: 050
     Dates: start: 20180731

REACTIONS (7)
  - General physical health deterioration [Unknown]
  - Nightmare [Unknown]
  - Intestinal perforation [Recovering/Resolving]
  - Nightmare [Recovered/Resolved]
  - Hallucination [Not Recovered/Not Resolved]
  - Hospitalisation [Not Recovered/Not Resolved]
  - Peritonitis [Recovering/Resolving]

NARRATIVE: CASE EVENT DATE: 2018
